FAERS Safety Report 5381291-X (Version None)
Quarter: 2007Q3

REPORT INFORMATION
  Report Type: 
  Country: None (occurrence: None)
  Receive Date: 20070702
  Receipt Date: 20060518
  Transmission Date: 20080115
  Serious: Yes (Hospitalization)
  Sender: FDA-Public Use
  Company Number: SUS1-2006-00523

PATIENT
  Age: 8 Year
  Sex: Female

DRUGS (3)
  1. PENTASA [Suspect]
     Indication: COLITIS ULCERATIVE
     Dosage: 500 MG, 2X/DAY:BID, ORAL ; 500 MG, 3X/DAY:TID, ORAL
     Route: 048
     Dates: start: 20060302, end: 20060321
  2. PENTASA [Suspect]
     Indication: COLITIS ULCERATIVE
     Dosage: 500 MG, 2X/DAY:BID, ORAL ; 500 MG, 3X/DAY:TID, ORAL
     Route: 048
     Dates: start: 20060322, end: 20060328
  3. PREDNISOLONE [Concomitant]

REACTIONS (4)
  - ABDOMINAL PAIN [None]
  - DIARRHOEA [None]
  - PYREXIA [None]
  - VOMITING [None]
